FAERS Safety Report 13832346 (Version 3)
Quarter: 2018Q2

REPORT INFORMATION
  Report Type: Spontaneous
  Country: US (occurrence: US)
  Receive Date: 20170804
  Receipt Date: 20180430
  Transmission Date: 20180711
  Serious: No
  Sender: FDA-Public Use
  Company Number: US-PFIZER INC-2017337997

PATIENT
  Age: 60 Year
  Sex: Female

DRUGS (1)
  1. XELJANZ [Suspect]
     Active Substance: TOFACITINIB CITRATE
     Dosage: 5 MG, UNK
     Dates: start: 201401

REACTIONS (7)
  - Rhinorrhoea [Unknown]
  - Peripheral swelling [Not Recovered/Not Resolved]
  - Arthralgia [Unknown]
  - Nasopharyngitis [Not Recovered/Not Resolved]
  - Cough [Unknown]
  - Pain in extremity [Not Recovered/Not Resolved]
  - Joint swelling [Unknown]
